FAERS Safety Report 4674731-2 (Version None)
Quarter: 2005Q2

REPORT INFORMATION
  Report Type: 
  Country: None (occurrence: None)
  Receive Date: 20050526
  Receipt Date: 20050408
  Transmission Date: 20051028
  Serious: Yes (Other)
  Sender: FDA-Public Use
  Company Number: PHEH2005US04117

PATIENT
  Age: 74 Year
  Sex: Female

DRUGS (8)
  1. AGRYLIN [Concomitant]
     Dosage: 0.5 MG, BID
     Route: 048
     Dates: end: 20041122
  2. ALLOPURINOL [Concomitant]
     Dosage: 100 MG, QD
     Route: 048
  3. HYDREA [Concomitant]
     Dosage: 500 MG, BID
     Route: 048
     Dates: end: 20041129
  4. HYDREA [Concomitant]
     Dosage: 500 MG, QD
     Route: 048
     Dates: start: 20050122, end: 20050408
  5. GLEEVEC [Suspect]
     Indication: CHRONIC MYELOID LEUKAEMIA
     Dosage: 200 MG, QD
     Route: 048
     Dates: start: 20050202, end: 20050209
  6. GLEEVEC [Suspect]
     Dosage: 200 MG, QD
     Route: 048
     Dates: start: 20050302, end: 20050408
  7. GLEEVEC [Suspect]
     Dosage: 300 MG, QD
     Route: 048
     Dates: start: 20050408
  8. GLEEVEC [Suspect]
     Dosage: 400 MG, QD
     Route: 048
     Dates: start: 20041110, end: 20041222

REACTIONS (6)
  - ANAEMIA [None]
  - BLOOD CREATININE INCREASED [None]
  - BLOOD UREA INCREASED [None]
  - CARDIAC FAILURE CONGESTIVE [None]
  - DIABETIC NEPHROPATHY [None]
  - RENAL FAILURE [None]
